FAERS Safety Report 15473886 (Version 1)
Quarter: 2018Q4

REPORT INFORMATION
  Report Type: Report from Study
  Country: TW (occurrence: TW)
  Receive Date: 20181008
  Receipt Date: 20181008
  Transmission Date: 20190205
  Serious: Yes (Death, Other)
  Sender: FDA-Public Use
  Company Number: TW-JNJFOC-20180921535

PATIENT
  Sex: Male

DRUGS (2)
  1. PREDNISOLONE. [Suspect]
     Active Substance: PREDNISOLONE
     Indication: PROSTATE CANCER METASTATIC
     Dosage: 5 MG OR 10 MG
     Route: 065
  2. ABIRATERONE ACETATE. [Suspect]
     Active Substance: ABIRATERONE ACETATE
     Indication: PROSTATE CANCER METASTATIC
     Route: 048

REACTIONS (10)
  - Stasis dermatitis [Unknown]
  - Diarrhoea [Unknown]
  - Hypokalaemia [Unknown]
  - Fatigue [Unknown]
  - Vertigo [Unknown]
  - Swelling face [Unknown]
  - Hyperkalaemia [Fatal]
  - Oedema peripheral [Unknown]
  - Abdominal discomfort [Unknown]
  - Liver function test increased [Unknown]
